FAERS Safety Report 21503571 (Version 1)
Quarter: 2022Q4

REPORT INFORMATION
  Report Type: Spontaneous
  Country: PL (occurrence: PL)
  Receive Date: 20221025
  Receipt Date: 20221025
  Transmission Date: 20230113
  Serious: Yes (Death, Hospitalization)
  Sender: FDA-Public Use
  Company Number: PL-BAYER-2022P018746

PATIENT
  Age: 68 Year
  Sex: Female

DRUGS (1)
  1. XARELTO [Suspect]
     Active Substance: RIVAROXABAN
     Indication: Atrial fibrillation
     Dosage: 20 MG FOR 5-6 YEARS
     Route: 048
     Dates: start: 2016

REACTIONS (7)
  - Ischaemic stroke [Fatal]
  - Atherosclerotic plaque rupture [Fatal]
  - Liver injury [Fatal]
  - Liver function test increased [Fatal]
  - Food poisoning [Fatal]
  - International normalised ratio increased [Fatal]
  - Petechiae [Fatal]

NARRATIVE: CASE EVENT DATE: 20221001
